FAERS Safety Report 16670153 (Version 5)
Quarter: 2020Q1

REPORT INFORMATION
  Report Type: Report from Study
  Country: TW (occurrence: TW)
  Receive Date: 20190805
  Receipt Date: 20200116
  Transmission Date: 20200409
  Serious: Yes (Hospitalization)
  Sender: FDA-Public Use
  Company Number: PHHO2019TW007089

PATIENT
  Age: 57 Year
  Sex: Male
  Weight: 64 kg

DRUGS (6)
  1. PYRIDOXINE HCL [Concomitant]
     Active Substance: PYRIDOXINE HYDROCHLORIDE
     Indication: LATENT TUBERCULOSIS
     Dosage: UNK
     Route: 065
     Dates: start: 20181227
  2. ADALIMUMAB [Suspect]
     Active Substance: ADALIMUMAB
     Dosage: UNK
     Route: 058
     Dates: start: 20190723
  3. ISONIAZIDE [Concomitant]
     Active Substance: ISONIAZID
     Indication: LATENT TUBERCULOSIS
     Dosage: UNK
     Route: 065
     Dates: start: 20181227
  4. MELOXICAM. [Concomitant]
     Active Substance: MELOXICAM
     Indication: ANKYLOSING SPONDYLITIS
     Dosage: UNK
     Route: 065
     Dates: start: 20170307
  5. ADALIMUMAB [Suspect]
     Active Substance: ADALIMUMAB
     Indication: ANKYLOSING SPONDYLITIS
     Dosage: UNK
     Route: 058
     Dates: start: 20190218, end: 20190709
  6. SOMA [Concomitant]
     Active Substance: CARISOPRODOL
     Indication: ANKYLOSING SPONDYLITIS
     Route: 065
     Dates: start: 20170307

REACTIONS (1)
  - Septic shock [Recovered/Resolved]

NARRATIVE: CASE EVENT DATE: 20190629
